FAERS Safety Report 13927890 (Version 5)
Quarter: 2018Q1

REPORT INFORMATION
  Report Type: Report from Study
  Country: US (occurrence: US)
  Receive Date: 20170901
  Receipt Date: 20180109
  Transmission Date: 20180508
  Serious: Yes (Hospitalization, Other)
  Sender: FDA-Public Use
  Company Number: PHHO2017US012257

PATIENT
  Age: 62 Year
  Sex: Male
  Weight: 71.6 kg

DRUGS (2)
  1. NAVITOCLAX [Suspect]
     Active Substance: NAVITOCLAX
     Indication: NEOPLASM MALIGNANT
     Dosage: 1800 MG, UNK
     Route: 048
     Dates: start: 20170530, end: 20170705
  2. GSK1120212 [Suspect]
     Active Substance: TRAMETINIB
     Indication: NEOPLASM MALIGNANT
     Dosage: 14 MG, UNK
     Route: 048
     Dates: start: 20170530, end: 20170702

REACTIONS (5)
  - Thrombocytopenia [Recovered/Resolved]
  - Hyperbilirubinaemia [Recovered/Resolved]
  - Enterococcal bacteraemia [Recovered/Resolved]
  - Pyrexia [Recovered/Resolved]
  - Obstruction gastric [Recovering/Resolving]

NARRATIVE: CASE EVENT DATE: 20170706
